FAERS Safety Report 4993829-2 (Version None)
Quarter: 2006Q2

REPORT INFORMATION
  Report Type: 
  Country: None (occurrence: None)
  Receive Date: 20060503
  Receipt Date: 20060421
  Transmission Date: 20061013
  Serious: Yes (Death)
  Sender: FDA-Public Use
  Company Number: GB200604000689

PATIENT
  Age: 83 Year

DRUGS (2)
  1. GEMCITABINE HYDROCHLORIDE [Suspect]
     Dosage: 152 MG, WEEKLY (1/W), INTRAVENOUS
     Route: 042
     Dates: start: 20050523, end: 20050613
  2. *RADIATION (*RADIATION) [Suspect]
     Dosage: 55 U
     Dates: start: 20050523, end: 20050617

REACTIONS (3)
  - CONDITION AGGRAVATED [None]
  - INTERSTITIAL LUNG DISEASE [None]
  - RADIATION FIBROSIS - LUNG [None]
